FAERS Safety Report 7379935-6 (Version None)
Quarter: 2011Q1

REPORT INFORMATION
  Report Type: 
  Country: None (occurrence: None)
  Receive Date: 20110329
  Receipt Date: 20110315
  Transmission Date: 20110831
  Serious: Yes (Other)
  Sender: FDA-Public Use
  Company Number: PHHY2011FR12822

PATIENT
  Age: 73 Year
  Sex: Female
  Weight: 77 kg

DRUGS (5)
  1. FORADILE [Concomitant]
  2. ROCEPHIN [Concomitant]
  3. MIFLONIL [Concomitant]
  4. RASILEZ HCT [Suspect]
     Indication: HYPERTENSION
     Dosage: 300 /UNK MG
     Route: 048
     Dates: start: 20101224, end: 20110119
  5. LEVOTHYROX [Concomitant]

REACTIONS (3)
  - BRONCHOPNEUMOPATHY [None]
  - TOXIC SKIN ERUPTION [None]
  - RASH [None]
